FAERS Safety Report 21849029 (Version 2)
Quarter: 2023Q1

REPORT INFORMATION
  Report Type: Spontaneous
  Country: US (occurrence: US)
  Receive Date: 20230111
  Receipt Date: 20230130
  Transmission Date: 20230417
  Serious: Yes (Other)
  Sender: FDA-Public Use
  Company Number: US-BRISTOL-MYERS SQUIBB COMPANY-2023-003988

PATIENT
  Age: 56 Year
  Sex: Female

DRUGS (4)
  1. BELATACEPT [Suspect]
     Active Substance: BELATACEPT
     Indication: Immunosuppressant drug therapy
     Dosage: INITIATED PER STANDARD RECOMMENDATIONS (INITIATION PHASE 10 MG/KG ON POST OPERATIVE DAYS 0, 4, 14, A
  2. MYCOPHENOLATE MOFETIL [Suspect]
     Active Substance: MYCOPHENOLATE MOFETIL
     Indication: Immunosuppressant drug therapy
  3. PREDNISONE [Suspect]
     Active Substance: PREDNISONE
     Indication: Immunosuppressant drug therapy
     Route: 048
  4. PREDNISONE [Suspect]
     Active Substance: PREDNISONE

REACTIONS (1)
  - Anti-neutrophil cytoplasmic antibody positive vasculitis [Recovered/Resolved]
